FAERS Safety Report 5491684-8 (Version None)
Quarter: 2007Q4

REPORT INFORMATION
  Report Type: 
  Country: None (occurrence: None)
  Receive Date: 20071018
  Receipt Date: 20071018
  Transmission Date: 20080405
  Serious: Yes (Hospitalization)
  Sender: FDA-Public Use
  Company Number: None

PATIENT
  Age: 49 Year
  Sex: Female
  Weight: 23.5 kg

DRUGS (7)
  1. VISIPAQUE [Suspect]
     Indication: SCAN WITH CONTRAST
     Dosage: 10 ML, ONCE, IV
     Route: 042
     Dates: start: 20070924
  2. TEMAZEPAM [Concomitant]
  3. POTASSIUM CHLORIDE [Concomitant]
  4. CHLORIDE [Concomitant]
  5. LORAZEPAM [Concomitant]
  6. ACETAMINOPHEN [Concomitant]
  7. MIDAZOLAM HCL [Concomitant]

REACTIONS (6)
  - BLOOD PRESSURE SYSTOLIC DECREASED [None]
  - HEART RATE DECREASED [None]
  - PROCEDURAL COMPLICATION [None]
  - RESPIRATORY DISTRESS [None]
  - THROAT IRRITATION [None]
  - WHEEZING [None]
